FAERS Safety Report 23301327 (Version 3)
Quarter: 2024Q3

REPORT INFORMATION
  Report Type: Spontaneous
  Country: US (occurrence: US)
  Receive Date: 20231215
  Receipt Date: 20240905
  Transmission Date: 20241017
  Serious: No
  Sender: PFIZER
  Company Number: US-PFIZER INC-PV202300195946

PATIENT
  Age: 9 Year
  Sex: Male

DRUGS (2)
  1. GENOTROPIN [Suspect]
     Active Substance: SOMATROPIN
     Indication: Hypopituitarism
     Dosage: 1.4 MG + 1.6 MG EVERY OTHER NIGHT TO ACHIEVE DOSE OF 1.5 MG SUB Q NIGHTLY
     Route: 058
     Dates: start: 20231108
  2. GENOTROPIN [Suspect]
     Active Substance: SOMATROPIN
     Dosage: 1.4 MG + 1.6 MG EVERY OTHER NIGHT TO ACHIEVE DOSE OF 1.5 MG SUB Q NIGHTLY
     Route: 058

REACTIONS (3)
  - Drug dose omission by device [Unknown]
  - Device leakage [Unknown]
  - Headache [Unknown]
